FAERS Safety Report 20611795 (Version 1)
Quarter: 2022Q1

REPORT INFORMATION
  Report Type: Report from Study
  Country: GB (occurrence: US)
  Receive Date: 20220318
  Receipt Date: 20220318
  Transmission Date: 20220423
  Serious: Yes (Other)
  Sender: FDA-Public Use
  Company Number: GB-NOVARTISPH-NVSC2022US061483

PATIENT
  Age: 31 Year
  Sex: Male

DRUGS (2)
  1. DEXAMETHASONE [Suspect]
     Active Substance: DEXAMETHASONE
     Indication: Immune thrombocytopenia
     Dosage: UNK
     Route: 065
  2. HUMAN IMMUNOGLOBULIN G [Concomitant]
     Active Substance: HUMAN IMMUNOGLOBULIN G
     Indication: Immune thrombocytopenia
     Dosage: UNK
     Route: 042

REACTIONS (11)
  - Haemorrhage [Unknown]
  - Cognitive disorder [Unknown]
  - Depressed mood [Unknown]
  - Initial insomnia [Unknown]
  - Asthenia [Not Recovered/Not Resolved]
  - Disturbance in attention [Unknown]
  - Negative thoughts [Unknown]
  - Platelet count abnormal [Unknown]
  - Anxiety [Unknown]
  - Fatigue [Not Recovered/Not Resolved]
  - Drug ineffective for unapproved indication [Unknown]
